FAERS Safety Report 20863605 (Version 2)
Quarter: 2022Q3

REPORT INFORMATION
  Report Type: Spontaneous
  Country: US (occurrence: US)
  Receive Date: 20220523
  Receipt Date: 20220908
  Transmission Date: 20221027
  Serious: No
  Sender: FDA-Public Use
  Company Number: US-BRISTOL-MYERS SQUIBB COMPANY-2022-043773

PATIENT
  Age: 62 Year
  Sex: Male
  Weight: 97.52 kg

DRUGS (2)
  1. REVLIMID [Suspect]
     Active Substance: LENALIDOMIDE
     Indication: Plasma cell myeloma
     Dosage: D1-21 EVERY 28 DAYS?D 1-14 Q 28 DAYS
     Route: 048
     Dates: start: 20220506
  2. XGEVA [Concomitant]
     Active Substance: DENOSUMAB
     Indication: Product used for unknown indication
     Route: 065

REACTIONS (3)
  - Rash pruritic [Recovered/Resolved]
  - Blood test abnormal [Unknown]
  - Intentional product use issue [Unknown]
